FAERS Safety Report 11069379 (Version 1)
Quarter: 2015Q2

REPORT INFORMATION
  Report Type: Spontaneous
  Country: IN (occurrence: IN)
  Receive Date: 20150427
  Receipt Date: 20150427
  Transmission Date: 20150821
  Serious: Yes (Hospitalization, Other)
  Sender: FDA-Public Use
  Company Number: PHHY2015IN044719

PATIENT
  Age: 52 Year
  Sex: Male

DRUGS (4)
  1. PREDNISOLONE. [Suspect]
     Active Substance: PREDNISOLONE
     Dosage: 5 MG, UNK
     Route: 048
  2. METHOTREXATE [Concomitant]
     Active Substance: METHOTREXATE
     Indication: PSORIASIS
     Dosage: 12.5 MG, UNK
     Route: 065
  3. PREDNISOLONE. [Suspect]
     Active Substance: PREDNISOLONE
     Indication: PSORIASIS
     Dosage: 10 MG, UNK
     Route: 048
  4. CYCLOSPORINE. [Concomitant]
     Active Substance: CYCLOSPORINE
     Dosage: 5 MG/KG, UNK
     Route: 048

REACTIONS (16)
  - Hypothalamic pituitary adrenal axis suppression [Unknown]
  - Erythrodermic psoriasis [Recovered/Resolved]
  - Hypotension [Recovered/Resolved]
  - Psoriatic arthropathy [Recovered/Resolved]
  - Deformity [Unknown]
  - Lethargy [Unknown]
  - Central obesity [Unknown]
  - Drug administration error [Unknown]
  - Cardiomegaly [Unknown]
  - Psoriasis [Recovered/Resolved]
  - Knee deformity [Unknown]
  - Asthenia [Unknown]
  - Cushingoid [Unknown]
  - Skin atrophy [Unknown]
  - Muscular weakness [Unknown]
  - Tachycardia [Recovered/Resolved]
